FAERS Safety Report 23024162 (Version 1)
Quarter: 2023Q4

REPORT INFORMATION
  Report Type: Spontaneous
  Country: FR (occurrence: FR)
  Receive Date: 20231004
  Receipt Date: 20231004
  Transmission Date: 20240110
  Serious: Yes (Hospitalization)
  Sender: FDA-Public Use
  Company Number: FR-BAXTER-2023BAX031438

PATIENT
  Age: 6 Year
  Sex: Male

DRUGS (15)
  1. WATER [Suspect]
     Active Substance: WATER
     Indication: Parenteral nutrition
     Dosage: (EPPI) AT AN UNSPECIFIED DOSE THREE TIMES PER WEEK FROM 07 P.M. TO 07:30 P.M.
     Route: 042
     Dates: start: 20230915, end: 20230915
  2. DEXTROSE [Suspect]
     Active Substance: DEXTROSE\DEXTROSE MONOHYDRATE
     Indication: Parenteral nutrition
     Dosage: (G 50%) AT AN UNSPECIFIED DOSE THREE TIMES PER WEEK FROM 07 P.M. TO 07:30 P.M.
     Route: 042
     Dates: start: 20230915, end: 20230915
  3. ALANINE\ARGININE\ASPARTIC ACID\CYSTEINE HYDROCHLORIDE\GLUTAMIC ACID\GL [Suspect]
     Active Substance: ALANINE\ARGININE\ASPARTIC ACID\CYSTEINE HYDROCHLORIDE\GLUTAMIC ACID\GLYCINE\HISTIDINE\ISOLEUCINE\LEU
     Indication: Parenteral nutrition
     Dosage: AT AN UNSPECIFIED DOSE THREE TIMES PER WEEK
     Route: 042
  4. ALANINE\ARGININE\ASPARTIC ACID\CYSTEINE HYDROCHLORIDE\GLUTAMIC ACID\GL [Suspect]
     Active Substance: ALANINE\ARGININE\ASPARTIC ACID\CYSTEINE HYDROCHLORIDE\GLUTAMIC ACID\GLYCINE\HISTIDINE\ISOLEUCINE\LEU
     Dosage: AT AN UNSPECIFIED DOSE THREE TIMES PER WEEK
     Route: 042
  5. SMOFLIPID [Suspect]
     Active Substance: FISH OIL\MEDIUM-CHAIN TRIGLYCERIDES\OLIVE OIL\SOYBEAN OIL
     Indication: Parenteral nutrition
     Dosage: (SMOF 20%) AT AN UNSPECIFIED DOSE THREE TIMES PER WEEK FROM 07 P.M. TO 07:30 P.M.
     Route: 042
     Dates: start: 20230915, end: 20230915
  6. POTASSIUM PHOSPHATE [Suspect]
     Active Substance: POTASSIUM PHOSPHATE
     Indication: Parenteral nutrition
     Dosage: (PO4K 13.6%) AT AN UNSPECIFIED DOSE THREE TIMES PER WEEK FROM 07 P.M. TO 07:30 P.M.
     Route: 042
     Dates: start: 20230915, end: 20230915
  7. ZINC [Suspect]
     Active Substance: ZINC
     Indication: Parenteral nutrition
     Dosage: AT AN UNSPECIFIED DOSE THREE TIMES PER WEEK FROM 07 P.M. TO 07:30 P.M.
     Route: 042
     Dates: start: 20230915, end: 20230915
  8. UNSPECIFIED INGREDIENT [Suspect]
     Active Substance: UNSPECIFIED INGREDIENT
     Indication: Parenteral nutrition
     Dosage: (OE-PED 40 ML) AT AN UNSPECIFIED DOSE THREE TIMES PER WEEK FROM 07 P.M. TO 07:30 P.M.
     Route: 042
     Dates: start: 20230915, end: 20230915
  9. VITAMINS [Suspect]
     Active Substance: VITAMINS
     Indication: Parenteral nutrition
     Dosage: AT AN UNSPECIFIED DOSE THREE TIMES PER WEEK FROM 07 P.M. TO 07:30 P.M.
     Route: 042
     Dates: start: 20230915, end: 20230915
  10. ERGOCALCIFEROL\PHYTONADIONE\TOCOPHEROL\VITAMIN A PALMITATE [Suspect]
     Active Substance: ERGOCALCIFEROL\PHYTONADIONE\TOCOPHEROL\VITAMIN A PALMITATE
     Indication: Parenteral nutrition
     Dosage: AT AN UNSPECIFIED DOSE THREE TIMES PER WEEK FROM 07 P.M. TO 07:30 P.M.
     Route: 042
     Dates: start: 20230915, end: 20230915
  11. LEVOCARNITINE [Suspect]
     Active Substance: LEVOCARNITINE
     Indication: Parenteral nutrition
     Dosage: AT AN UNSPECIFIED DOSE THREE TIMES PER WEEK FROM 07 P.M. TO 07:30 P.M.
     Route: 042
     Dates: start: 20230915, end: 20230915
  12. MAGNESIUM SULFATE [Suspect]
     Active Substance: MAGNESIUM SULFATE
     Indication: Parenteral nutrition
     Dosage: (MGSO4 49%) AT AN UNSPECIFIED DOSE THREE TIMES PER WEEK FROM 07 P.M. TO 07:30 P.M.
     Route: 042
     Dates: start: 20230915, end: 20230915
  13. KCL [Suspect]
     Active Substance: POTASSIUM CHLORIDE
     Indication: Parenteral nutrition
     Dosage: AT AN UNSPECIFIED DOSE THREE TIMES PER WEEK FROM 07 P.M. TO 07:30 P.M.
     Route: 042
     Dates: start: 20230915, end: 20230915
  14. SODIUM CHLORIDE [Suspect]
     Active Substance: SODIUM CHLORIDE
     Indication: Parenteral nutrition
     Dosage: AT AN UNSPECIFIED DOSE THREE TIMES PER WEEK FROM 07 P.M. TO 07:30 P.M.
     Route: 042
     Dates: start: 20230915, end: 20230915
  15. CALCIUM GLUCONATE [Suspect]
     Active Substance: CALCIUM GLUCONATE
     Indication: Parenteral nutrition
     Dosage: (GLUCO CA 10%) AT AN UNSPECIFIED DOSE THREE TIMES PER WEEK FROM 07 P.M. TO 07:30 P.M.
     Route: 042
     Dates: start: 20230915, end: 20230915

REACTIONS (7)
  - Fatigue [Recovered/Resolved]
  - Cough [Recovered/Resolved]
  - Vomiting [Recovered/Resolved]
  - Pruritus [Recovered/Resolved]
  - Dermatitis acneiform [Recovered/Resolved]
  - Swelling of eyelid [Recovered/Resolved]
  - Product distribution issue [Unknown]

NARRATIVE: CASE EVENT DATE: 20230915
